FAERS Safety Report 7175457 (Version 4)
Quarter: 2024Q3

REPORT INFORMATION
  Report Type: Report from Study
  Country: MX (occurrence: MX)
  Receive Date: 20091112
  Receipt Date: 20240718
  Transmission Date: 20241016
  Serious: Yes (Other)
  Sender: NOVARTIS
  Company Number: PHHY2009MX48523

PATIENT
  Age: 29 Year
  Sex: Female
  Weight: 60 kg

DRUGS (2)
  1. TRILEPTAL [Suspect]
     Active Substance: OXCARBAZEPINE
     Indication: Epilepsy
     Dosage: 600 MG, BID (MORNING AND NIGHT)
     Route: 065
     Dates: start: 200909
  2. TRILEPTAL [Suspect]
     Active Substance: OXCARBAZEPINE
     Dosage: 300 MG, QN
     Route: 065
     Dates: start: 200909

REACTIONS (8)
  - Cerebral infarction [Unknown]
  - Cerebrovascular accident [Unknown]
  - Seizure [Recovering/Resolving]
  - Epilepsy [Unknown]
  - Cerebral haemorrhage [Not Recovered/Not Resolved]
  - Memory impairment [Unknown]
  - Mobility decreased [Unknown]
  - Post procedural complication [Unknown]

NARRATIVE: CASE EVENT DATE: 20090909
